FAERS Safety Report 15725138 (Version 1)
Quarter: 2018Q4

REPORT INFORMATION
  Report Type: Spontaneous
  Country: US (occurrence: US)
  Receive Date: 20181215
  Receipt Date: 20181215
  Transmission Date: 20190205
  Serious: Yes (Hospitalization)
  Sender: FDA-Public Use
  Company Number: US-OTSUKA-2018_037937

PATIENT
  Sex: Male

DRUGS (7)
  1. VARDENAFIL HYDROCHLORIDE. [Concomitant]
     Active Substance: VARDENAFIL HYDROCHLORIDE
     Indication: PRODUCT USED FOR UNKNOWN INDICATION
     Dosage: 20 MG, QD
     Route: 048
  2. FLUOXETINE HYDROCHLORIDE. [Concomitant]
     Active Substance: FLUOXETINE HYDROCHLORIDE
     Indication: PRODUCT USED FOR UNKNOWN INDICATION
     Dosage: 20 MG, QD
     Route: 048
  3. SIMVASTATIN. [Concomitant]
     Active Substance: SIMVASTATIN
     Indication: PRODUCT USED FOR UNKNOWN INDICATION
     Dosage: 40 MG, QD
     Route: 065
  4. VARENICLINE [Concomitant]
     Active Substance: VARENICLINE
     Indication: PRODUCT USED FOR UNKNOWN INDICATION
     Dosage: 1 MG, QD
     Route: 065
  5. NAPROXEN. [Concomitant]
     Active Substance: NAPROXEN
     Indication: PRODUCT USED FOR UNKNOWN INDICATION
     Dosage: 500 MG, QD
     Route: 048
  6. ABILIFY [Suspect]
     Active Substance: ARIPIPRAZOLE
     Indication: AFFECTIVE DISORDER
     Dosage: 15 MG, QD
     Route: 048
     Dates: start: 20040510
  7. IBUPROFEN. [Concomitant]
     Active Substance: IBUPROFEN
     Indication: PRODUCT USED FOR UNKNOWN INDICATION
     Dosage: 600 MG, QD
     Route: 048

REACTIONS (18)
  - Psychotic disorder [Unknown]
  - Gambling disorder [Recovered/Resolved]
  - Bankruptcy [Unknown]
  - Divorced [Unknown]
  - Economic problem [Unknown]
  - Product use in unapproved indication [Unknown]
  - Essential hypertension [Unknown]
  - Impulse-control disorder [Unknown]
  - Homeless [Unknown]
  - Suicidal ideation [Unknown]
  - Delusional disorder, unspecified type [Unknown]
  - Partner stress [Unknown]
  - Obsessive-compulsive disorder [Unknown]
  - Mental disorder [Unknown]
  - Hyperlipidaemia [Unknown]
  - Sleep disorder [Unknown]
  - Condition aggravated [Recovered/Resolved]
  - Emotional distress [Unknown]

NARRATIVE: CASE EVENT DATE: 2005
